FAERS Safety Report 23311870 (Version 1)
Quarter: 2023Q4

REPORT INFORMATION
  Report Type: Spontaneous
  Country: DE (occurrence: DE)
  Receive Date: 20231219
  Receipt Date: 20231219
  Transmission Date: 20240109
  Serious: Yes (Hospitalization, Other)
  Sender: FDA-Public Use
  Company Number: None

PATIENT

DRUGS (6)
  1. ATORVASTATIN [Suspect]
     Active Substance: ATORVASTATIN
     Indication: Cerebrovascular accident
     Route: 048
     Dates: start: 20231012, end: 20231116
  2. ASPIRIN [Concomitant]
     Active Substance: ASPIRIN
     Indication: Product used for unknown indication
     Dosage: 1-0-0
     Route: 065
  3. INFLUENZA VIRUS VACCINE QUADRIVALENT TYPE A+B [Concomitant]
     Active Substance: INFLUENZA VIRUS VACCINE QUADRIVALENT TYPE A+B
     Indication: Product used for unknown indication
     Route: 065
     Dates: start: 20231108, end: 20231108
  4. MOXONIDINE [Concomitant]
     Active Substance: MOXONIDINE
     Indication: Product used for unknown indication
     Dosage: 0-0-1
     Route: 065
  5. Lercanidipin-Omniapharm [Concomitant]
     Indication: Product used for unknown indication
     Dosage: 0.5-0-0.5
     Route: 065
  6. IFIRMASTA [Concomitant]
     Indication: Product used for unknown indication
     Dosage: 1-0-0
     Route: 065

REACTIONS (8)
  - Urinary bladder haemorrhage [Unknown]
  - Blood bilirubin increased [Not Recovered/Not Resolved]
  - Transaminases increased [Not Recovered/Not Resolved]
  - Hepatic failure [Not Recovered/Not Resolved]
  - Weight decreased [Unknown]
  - Dehydration [Unknown]
  - General physical health deterioration [Unknown]
  - Jaundice [Unknown]

NARRATIVE: CASE EVENT DATE: 20231101
